FAERS Safety Report 9524709 (Version 2)
Quarter: 2014Q1

REPORT INFORMATION
  Report Type: Spontaneous
  Country: US (occurrence: None)
  Receive Date: 20130305
  Receipt Date: 20140306
  Transmission Date: 20141002
  Serious: Yes (Other)
  Sender: FDA-Public Use
  Company Number: 163-21880-12022899

PATIENT
  Age: 74 Year
  Sex: Female

DRUGS (3)
  1. REVLIMID (LENALIDOMIDE) (15 MILLIGRAM, CAPSULES) [Suspect]
     Indication: PLASMA CELL MYELOMA
     Route: 048
     Dates: start: 20111218
  2. ENOXAPARIN [Concomitant]
  3. LOVENOX(HEPARIN-FRACTION, SODIUM SALT)(UNKNOWN) [Concomitant]

REACTIONS (6)
  - Thrombosis [None]
  - Insomnia [None]
  - Nasopharyngitis [None]
  - Cough [None]
  - Pyrexia [None]
  - Blood creatinine abnormal [None]
